FAERS Safety Report 21945334 (Version 5)
Quarter: 2023Q4

REPORT INFORMATION
  Report Type: Spontaneous
  Country: US (occurrence: US)
  Receive Date: 20230202
  Receipt Date: 20231115
  Transmission Date: 20240110
  Serious: No
  Sender: FDA-Public Use
  Company Number: US-PFIZER INC-202300047580

PATIENT
  Age: 64 Year
  Sex: Female
  Weight: 56.236 kg

DRUGS (5)
  1. XELJANZ [Suspect]
     Active Substance: TOFACITINIB CITRATE
     Indication: Rheumatoid arthritis
     Dosage: 5 MG, 2X/DAY
     Route: 048
  2. SULFASALAZINE [Concomitant]
     Active Substance: SULFASALAZINE
     Dosage: TAKE TWO IN THE MORNING AND TWO IN NIGHT
  3. FOLIC ACID [Concomitant]
     Active Substance: FOLIC ACID
     Dosage: TAKE ONE TABLET BY MOTH EVERY MORNING
     Route: 048
  4. METHYLPREDNISOLONE [Concomitant]
     Active Substance: METHYLPREDNISOLONE
     Dosage: TAKE ONE TABLET BY MOUTH IN THE MORNING
     Route: 048
  5. RALOXIFENE [Concomitant]
     Active Substance: RALOXIFENE
     Indication: Bone disorder
     Dosage: TAKE ONE OF DOSE A DAY

REACTIONS (3)
  - Confusional state [Unknown]
  - Concussion [Unknown]
  - Product dispensing error [Unknown]
